FAERS Safety Report 22063563 (Version 2)
Quarter: 2023Q4

REPORT INFORMATION
  Report Type: Spontaneous
  Country: KR (occurrence: KR)
  Receive Date: 20230306
  Receipt Date: 20231116
  Transmission Date: 20240109
  Serious: Yes (Other)
  Sender: FDA-Public Use
  Company Number: KR-BAYER-2023A027577

PATIENT
  Age: 65 Year
  Sex: Female

DRUGS (5)
  1. EYLEA [Suspect]
     Active Substance: AFLIBERCEPT
     Indication: Product used for unknown indication
     Dosage: 1 DF, ONCE, LEFT EYE, SOLUTION FOR INJECTION (40MG/ML)
     Dates: start: 202010, end: 202010
  2. EYLEA [Suspect]
     Active Substance: AFLIBERCEPT
     Dosage: 1 DF, ONCE, LEFT EYE, SOLUTION FOR INJECTION (40MG/ML)
     Dates: start: 202011, end: 202011
  3. EYLEA [Suspect]
     Active Substance: AFLIBERCEPT
     Dosage: 1 DF, ONCE, LEFT EYE, SOLUTION FOR INJECTION (40MG/ML)
     Dates: start: 202012, end: 202012
  4. EYLEA [Suspect]
     Active Substance: AFLIBERCEPT
     Dosage: 1 DF, ONCE, LEFT EYE, SOLUTION FOR INJECTION (40MG/ML)
     Dates: start: 202205, end: 202205
  5. EYLEA [Suspect]
     Active Substance: AFLIBERCEPT
     Dosage: 1 DF, ONCE, LEFT EYE, SOLUTION FOR INJECTION (40MG/ML)
     Dates: start: 20220628, end: 20220628

REACTIONS (1)
  - Retinal oedema [Unknown]

NARRATIVE: CASE EVENT DATE: 20220501
